FAERS Safety Report 4937208-2 (Version None)
Quarter: 2006Q1

REPORT INFORMATION
  Report Type: 
  Country: None (occurrence: None)
  Receive Date: 20060309
  Receipt Date: 20060228
  Transmission Date: 20060701
  Serious: Yes (Death, Hospitalization)
  Sender: FDA-Public Use
  Company Number: AU-JNJFOC-20060300786

PATIENT
  Age: 24 Month
  Sex: Female

DRUGS (2)
  1. ACETAMINOPHEN [Suspect]
  2. ACETAMINOPHEN [Suspect]
     Indication: ANTIPYRESIS
     Dosage: 17 DOSES OVER 70 HOURS (TOTAL OF 11.05 G)

REACTIONS (2)
  - HEPATIC FAILURE [None]
  - OVERDOSE [None]
